FAERS Safety Report 8590173-1 (Version None)
Quarter: 2012Q3

REPORT INFORMATION
  Report Type: 
  Country: None (occurrence: None)
  Receive Date: 20120813
  Receipt Date: 20120813
  Transmission Date: 20120928
  Serious: Yes (Other)
  Sender: FDA-Public Use
  Company Number: US-PFIZER INC-2012180937

PATIENT
  Age: 49 Year
  Sex: Female
  Weight: 79.365 kg

DRUGS (18)
  1. PREDNISONE [Concomitant]
     Indication: CENTRAL NERVOUS SYSTEM INFLAMMATION
  2. TOPAMAX [Suspect]
     Indication: FEELING HOT
  3. PREDNISONE [Concomitant]
  4. LYRICA [Suspect]
     Indication: CAUDA EQUINA SYNDROME
     Dosage: UNK
     Route: 048
     Dates: start: 20070101, end: 20070101
  5. LYRICA [Suspect]
     Dosage: 100 MG, 3X/DAY
     Route: 048
  6. NEURONTIN [Suspect]
     Indication: CAUDA EQUINA SYNDROME
     Dosage: 100 MG, 3X/DAY
     Route: 048
     Dates: start: 20070101, end: 20070101
  7. TOPAMAX [Suspect]
     Indication: VULVOVAGINAL BURNING SENSATION
     Dosage: UNK
     Dates: start: 20070101, end: 20070101
  8. ATIVAN [Concomitant]
     Indication: PANIC ATTACK
  9. LEVOTHYROXINE [Concomitant]
     Indication: THYROID DISORDER
     Dosage: UNK
  10. KLONOPIN [Concomitant]
     Indication: ANXIETY
     Dosage: UNK
  11. XANAX [Concomitant]
     Indication: ANXIETY
     Dosage: UNK
  12. XANAX [Concomitant]
     Indication: PANIC ATTACK
  13. TOPAMAX [Suspect]
     Indication: BURNING SENSATION
  14. AMITRIPTYLINE [Concomitant]
     Dosage: UNK
  15. ATIVAN [Concomitant]
     Indication: ANXIETY
     Dosage: UNK
  16. KLONOPIN [Concomitant]
     Indication: PANIC ATTACK
  17. LYRICA [Suspect]
     Dosage: 100 MG, 1X/DAY
     Route: 048
     Dates: start: 20070101
  18. PREDNISONE [Concomitant]
     Indication: RESPIRATORY DISORDER
     Dosage: UNK
     Route: 042

REACTIONS (15)
  - VULVOVAGINAL BURNING SENSATION [None]
  - DEPRESSION [None]
  - ABNORMAL BEHAVIOUR [None]
  - PAIN IN EXTREMITY [None]
  - PAIN [None]
  - BACK PAIN [None]
  - HOSTILITY [None]
  - GAIT DISTURBANCE [None]
  - MENTAL IMPAIRMENT [None]
  - BURNING SENSATION [None]
  - SUICIDAL IDEATION [None]
  - DYSPHEMIA [None]
  - NEUROPATHY PERIPHERAL [None]
  - AMNESIA [None]
  - FEELING HOT [None]
